FAERS Safety Report 5275886-1 (Version None)
Quarter: 2007Q1

REPORT INFORMATION
  Report Type: 
  Country: None (occurrence: None)
  Receive Date: 20070326
  Receipt Date: 20070313
  Transmission Date: 20070707
  Serious: Yes (Hospitalization)
  Sender: FDA-Public Use
  Company Number: 2007AP00902

PATIENT
  Age: 64 Year
  Sex: Male
  Weight: 77.3 kg

DRUGS (7)
  1. MEROPEN [Suspect]
     Indication: PYREXIA
     Route: 041
     Dates: start: 20050727, end: 20050801
  2. THIENAM [Suspect]
     Indication: PYREXIA
     Route: 041
     Dates: start: 20050722, end: 20050727
  3. MUCOSTA [Concomitant]
     Route: 048
     Dates: end: 20050817
  4. BACTA [Concomitant]
     Route: 048
  5. GRAN [Concomitant]
     Indication: LEUKOPENIA
     Route: 058
     Dates: start: 20050722, end: 20050728
  6. AMIKACIN SULPHATE [Concomitant]
     Indication: PYREXIA
     Route: 041
     Dates: start: 20050725, end: 20050802
  7. MYSLEE [Concomitant]
     Indication: INSOMNIA
     Route: 048
     Dates: start: 20050729, end: 20050802

REACTIONS (1)
  - DRUG HYPERSENSITIVITY [None]
